FAERS Safety Report 7428467-5 (Version None)
Quarter: 2011Q2

REPORT INFORMATION
  Report Type: 
  Country: None (occurrence: None)
  Receive Date: 20110421
  Receipt Date: 20110412
  Transmission Date: 20111010
  Serious: Yes (Hospitalization)
  Sender: FDA-Public Use
  Company Number: DK-NOVOPROD-326574

PATIENT
  Age: 75 Year
  Sex: Male

DRUGS (6)
  1. GLIMEPIRIDE [Concomitant]
  2. BENDROFLUMETHIAZIDE [Concomitant]
  3. VICTOZA [Suspect]
     Indication: TYPE 2 DIABETES MELLITUS
     Dosage: UNK
     Route: 065
  4. ENALAPRIL MALEATE [Concomitant]
  5. SIMVASTATIN [Concomitant]
  6. ACETYLSALICYLIC ACID SRT [Concomitant]

REACTIONS (3)
  - DEHYDRATION [None]
  - CONSTIPATION [None]
  - VOMITING [None]
